FAERS Safety Report 9915935 (Version 2)
Quarter: 2014Q1

REPORT INFORMATION
  Report Type: Spontaneous
  Country: US (occurrence: None)
  Receive Date: 20140219
  Receipt Date: 20140312
  Transmission Date: 20141002
  Serious: Yes (Other)
  Sender: FDA-Public Use
  Company Number: 2014P1001207

PATIENT
  Sex: Male

DRUGS (2)
  1. RISPERIDONE [Suspect]
     Dates: start: 2011
  2. RISPERIDONE [Suspect]

REACTIONS (2)
  - Breast swelling [None]
  - Hepatic cancer stage IV [None]
